FAERS Safety Report 10740856 (Version 3)
Quarter: 2015Q3

REPORT INFORMATION
  Report Type: Spontaneous
  Country: US (occurrence: US)
  Receive Date: 20150127
  Receipt Date: 20150713
  Transmission Date: 20151125
  Serious: No
  Sender: FDA-Public Use
  Company Number: US-PFIZER INC-2015032091

PATIENT
  Age: 34 Year
  Sex: Female
  Weight: 75 kg

DRUGS (10)
  1. PLAQUENIL [Concomitant]
     Active Substance: HYDROXYCHLOROQUINE SULFATE
     Dosage: 200 MG, UNK
  2. DEVILS CLAW [Concomitant]
     Active Substance: HERBS\UNSPECIFIED INGREDIENT
     Dosage: 510 MG, UNK
  3. VITAMIN D3 [Concomitant]
     Active Substance: CHOLECALCIFEROL
     Dosage: 10000 IU, UNK
  4. BOSWELLIA SERRATA EXTRACT [Concomitant]
     Dosage: 375 MG, UNK
  5. XELJANZ [Suspect]
     Active Substance: TOFACITINIB CITRATE
     Indication: RHEUMATOID ARTHRITIS
     Dosage: 5 MG, 2X/DAY
     Route: 048
     Dates: start: 201410, end: 201412
  6. XELJANZ [Suspect]
     Active Substance: TOFACITINIB CITRATE
     Dosage: 5 MG, 2X/DAY
     Route: 048
  7. PREDNISONE. [Concomitant]
     Active Substance: PREDNISONE
     Dosage: 1 MG, UNK
  8. BIOTIN [Concomitant]
     Active Substance: BIOTIN
     Dosage: 5000
  9. TURMERIC [Concomitant]
     Active Substance: TURMERIC
     Dosage: 450 MG, UNK
  10. GINGER. [Concomitant]
     Active Substance: GINGER
     Dosage: 500 MG, UNK

REACTIONS (6)
  - Arthralgia [Unknown]
  - Oropharyngeal pain [Unknown]
  - Influenza [Recovered/Resolved]
  - Condition aggravated [Unknown]
  - Headache [Recovered/Resolved]
  - Arthritis [Unknown]

NARRATIVE: CASE EVENT DATE: 201410
